FAERS Safety Report 5469778-2 (Version None)
Quarter: 2007Q3

REPORT INFORMATION
  Report Type: 
  Country: None (occurrence: None)
  Receive Date: 20070927
  Receipt Date: 20070608
  Transmission Date: 20080115
  Serious: No
  Sender: FDA-Public Use
  Company Number: US-AMGEN-KDL228408

PATIENT
  Sex: Female

DRUGS (6)
  1. NEUPOGEN [Suspect]
     Indication: NEUTROPENIA
  2. NEUMEGA [Concomitant]
  3. TAXOL [Concomitant]
  4. TAXOTERE [Concomitant]
  5. CARBOPLATIN [Concomitant]
  6. DOXORUBICIN HYDROCHLORIDE [Concomitant]

REACTIONS (2)
  - DRUG INEFFECTIVE [None]
  - LEUKAEMIA [None]
